FAERS Safety Report 12332767 (Version 1)
Quarter: 2016Q2

REPORT INFORMATION
  Report Type: Spontaneous
  Country: US (occurrence: US)
  Receive Date: 20160504
  Receipt Date: 20160504
  Transmission Date: 20160815
  Serious: No
  Sender: FDA-Public Use
  Company Number: US-ELI_LILLY_AND_COMPANY-US201604006478

PATIENT
  Sex: Female
  Weight: 55.78 kg

DRUGS (12)
  1. NIFEDINE [Concomitant]
     Indication: HYPERTENSION
     Dosage: UNK, UNKNOWN
     Dates: start: 1983
  2. ASPIRIN                            /00002701/ [Concomitant]
     Active Substance: ASPIRIN
     Indication: PROPHYLAXIS
     Dosage: UNK, UNKNOWN
     Dates: start: 2006
  3. FOLIC ACID. [Concomitant]
     Active Substance: FOLIC ACID
     Indication: SUPPLEMENTATION THERAPY
     Dosage: UNK, UNKNOWN
     Dates: start: 20160215
  4. CISPLATIN. [Concomitant]
     Active Substance: CISPLATIN
     Indication: MESOTHELIOMA
     Dosage: 75 MG/M2, CYCLICAL
     Route: 042
     Dates: start: 20160307, end: 20160403
  5. PEMETREXED [Concomitant]
     Active Substance: PEMETREXED
     Indication: MESOTHELIOMA
     Dosage: 500 MG/M2, CYCLICAL
     Route: 042
     Dates: start: 20160307, end: 20160328
  6. OLANZAPINE. [Suspect]
     Active Substance: OLANZAPINE
     Indication: NAUSEA
     Dosage: UNK, UNKNOWN
     Route: 065
     Dates: start: 20160331, end: 20160401
  7. LEVOTHYROXINE SODIUM. [Concomitant]
     Active Substance: LEVOTHYROXINE SODIUM
     Indication: HYPOTHYROIDISM
     Dosage: UNK, UNKNOWN
     Dates: start: 1993
  8. ONDANSETRON [Concomitant]
     Active Substance: ONDANSETRON
     Indication: NAUSEA
     Dosage: UNK, UNKNOWN
     Dates: start: 20160328
  9. HYDROCHLOROTHIAZIDE. [Concomitant]
     Active Substance: HYDROCHLOROTHIAZIDE
     Indication: HYPERTENSION
     Dosage: UNK, UNKNOWN
  10. SIMVASTATIN. [Concomitant]
     Active Substance: SIMVASTATIN
     Indication: HYPERCHOLESTEROLAEMIA
     Dosage: UNK, UNKNOWN
     Dates: start: 1988
  11. DEXAMETHASONE. [Concomitant]
     Active Substance: DEXAMETHASONE
     Indication: SUPPLEMENTATION THERAPY
     Dosage: UNK, UNKNOWN
     Dates: start: 20160306
  12. VITAMIN B12 [Concomitant]
     Active Substance: CYANOCOBALAMIN
     Indication: SUPPLEMENTATION THERAPY
     Dosage: UNK, UNKNOWN
     Dates: start: 20160307

REACTIONS (2)
  - Migraine with aura [Unknown]
  - Off label use [Unknown]

NARRATIVE: CASE EVENT DATE: 20160331
